FAERS Safety Report 15956421 (Version 4)
Quarter: 2020Q2

REPORT INFORMATION
  Report Type: Spontaneous
  Country: US (occurrence: US)
  Receive Date: 20190213
  Receipt Date: 20200511
  Transmission Date: 20200713
  Serious: No
  Sender: FDA-Public Use
  Company Number: US-PFIZER INC-2019056276

PATIENT
  Age: 88 Year
  Sex: Female

DRUGS (12)
  1. PROCAINE BENZYLPENICILLIN [Suspect]
     Active Substance: PENICILLIN G PROCAINE
     Dosage: UNK
  2. MEPIVACAINE HCL [Suspect]
     Active Substance: MEPIVACAINE HYDROCHLORIDE
     Dosage: UNK
  3. HYDROCODONE/ACETAMINOPHEN [Suspect]
     Active Substance: ACETAMINOPHEN\HYDROCODONE
     Dosage: UNK
  4. HYDROCHLOROTHIAZIDE. [Suspect]
     Active Substance: HYDROCHLOROTHIAZIDE
     Dosage: UNK
  5. NOVOCAIN [Suspect]
     Active Substance: PROCAINE HYDROCHLORIDE
     Dosage: UNK
  6. DEMEROL [Suspect]
     Active Substance: MEPERIDINE HYDROCHLORIDE
     Dosage: UNK
  7. ATROPINE SULFATE. [Suspect]
     Active Substance: ATROPINE SULFATE
     Dosage: UNK
  8. DECLOMYCIN [Suspect]
     Active Substance: DEMECLOCYCLINE HYDROCHLORIDE
     Dosage: UNK
  9. MEPERIDINE HCL [Suspect]
     Active Substance: MEPERIDINE HYDROCHLORIDE
     Dosage: UNK
  10. HYDROCODONE [Suspect]
     Active Substance: HYDROCODONE
     Dosage: UNK
  11. LISINOPRIL. [Suspect]
     Active Substance: LISINOPRIL
     Dosage: UNK
  12. DEMECLOCYCLINE [Suspect]
     Active Substance: DEMECLOCYCLINE
     Dosage: UNK

REACTIONS (1)
  - Drug hypersensitivity [Unknown]
